FAERS Safety Report 5411361-9 (Version None)
Quarter: 2007Q3

REPORT INFORMATION
  Report Type: 
  Country: None (occurrence: None)
  Receive Date: 20070810
  Receipt Date: 20070727
  Transmission Date: 20080115
  Serious: Yes (Other)
  Sender: FDA-Public Use
  Company Number: JP-BRISTOL-MYERS SQUIBB COMPANY-13868427

PATIENT
  Age: 65 Year
  Sex: Male

DRUGS (12)
  1. EFAVIRENZ [Suspect]
     Indication: HIV INFECTION
     Dosage: 600MG/DAILY STARTED ON 04FEB02-07MAY02.REDUCED TO 400MG/DAILY ON 08MAY02. 26DEC06-UNK.
     Route: 048
     Dates: start: 20020508, end: 20061113
  2. VIRAMUNE [Suspect]
     Indication: HIV INFECTION
     Dosage: DOSE WAS INCREASED FROM 200MG TO 400MG 28NOV06-25DEC06 ORAL AND 28DAYS
     Route: 048
     Dates: start: 20061114, end: 20061127
  3. EPZICOM [Suspect]
     Dates: start: 20060606
  4. MAGNESIUM OXIDE [Concomitant]
     Dates: end: 20070228
  5. OCTOCOG ALPHA [Concomitant]
  6. LENDORMIN [Concomitant]
  7. INSULIN [Concomitant]
     Dates: end: 20061114
  8. LORAZEPAM [Concomitant]
     Dates: end: 20061009
  9. PAXIL [Concomitant]
  10. INSULIN HUMAN [Concomitant]
     Dates: start: 20061115
  11. NOVOLIN R [Concomitant]
  12. NOVOLIN R [Concomitant]

REACTIONS (4)
  - ABDOMINAL PAIN [None]
  - DYSGEUSIA [None]
  - INSOMNIA [None]
  - LOSS OF CONSCIOUSNESS [None]
